FAERS Safety Report 24953020 (Version 1)
Quarter: 2025Q1

REPORT INFORMATION
  Report Type: Spontaneous
  Country: US (occurrence: US)
  Receive Date: 20250211
  Receipt Date: 20250211
  Transmission Date: 20250409
  Serious: No
  Sender: SANOFI AVENTIS
  Company Number: US-SA-2025SA037736

PATIENT
  Age: 44 Year
  Sex: Male

DRUGS (1)
  1. DUPIXENT [Suspect]
     Active Substance: DUPILUMAB
     Indication: Eosinophilic oesophagitis
     Dosage: 300 MG, QW
     Route: 058
     Dates: start: 20241127

REACTIONS (6)
  - Injection site urticaria [Unknown]
  - Dysphagia [Unknown]
  - Injection site pruritus [Unknown]
  - Injection site pain [Unknown]
  - Product preparation error [Unknown]
  - Inappropriate schedule of product administration [Unknown]
